FAERS Safety Report 4913113-2 (Version None)
Quarter: 2006Q1

REPORT INFORMATION
  Report Type: 
  Country: None (occurrence: None)
  Receive Date: 20060210
  Receipt Date: 20060131
  Transmission Date: 20060701
  Serious: Yes (Other)
  Sender: FDA-Public Use
  Company Number: 2006015958

PATIENT
  Age: 71 Year
  Sex: Male
  Weight: 70.7 kg

DRUGS (7)
  1. SU-011,248 [Suspect]
     Indication: RENAL CELL CARCINOMA STAGE UNSPECIFIED
     Dosage: 50 MG (50 MG, CYCLIC INTERVAL:  EVERY DAY), ORAL
     Route: 048
     Dates: start: 20051123
  2. VERAPAMIL [Concomitant]
  3. LISINOPRIL [Concomitant]
  4. DIGOXIN [Concomitant]
  5. WARFARIN [Concomitant]
  6. OMEGA-3 TRIGLYCERIDES (OMEGA-3 TRIGLYCERIDES) [Concomitant]
  7. GRAPE SEED EXTRACT (VITIS VINIFERA EXTRACT) [Concomitant]

REACTIONS (2)
  - POLYCYTHAEMIA [None]
  - UPPER RESPIRATORY TRACT INFECTION [None]
